FAERS Safety Report 23936903 (Version 1)
Quarter: 2024Q2

REPORT INFORMATION
  Report Type: Spontaneous
  Country: US (occurrence: None)
  Receive Date: 20240603
  Receipt Date: 20240603
  Transmission Date: 20240716
  Serious: No
  Sender: FDA-Public Use
  Company Number: None

PATIENT
  Age: 39 Year
  Sex: Male

DRUGS (1)
  1. OTEZLA [Suspect]
     Active Substance: APREMILAST
     Indication: Behcet^s syndrome
     Dosage: OTHER QUANTITY : 1 DOSE;?FREQUENCY : TWICE A DAY;?
     Route: 048
     Dates: start: 202406

REACTIONS (1)
  - Gastrointestinal anastomotic leak [None]
